FAERS Safety Report 8842936 (Version 1)
Quarter: 2012Q4

REPORT INFORMATION
  Report Type: Report from Study
  Country: JP (occurrence: JP)
  Receive Date: 20121016
  Receipt Date: 20121016
  Transmission Date: 20130627
  Serious: Yes (Hospitalization)
  Sender: FDA-Public Use
  Company Number: JP-VERTEX PHARMACEUTICAL INC.-2012-022914

PATIENT
  Age: 54 Year
  Sex: Female

DRUGS (5)
  1. VX-950 [Suspect]
     Indication: HEPATITIS C
     Dosage: 2250 mg, qd
     Route: 048
     Dates: start: 20120702, end: 20120827
  2. RIBAVIRIN [Concomitant]
     Dosage: 600 mg, qd
     Route: 048
     Dates: start: 20120702
  3. RIBAVIRIN [Concomitant]
     Dosage: 200 mg, qd
     Route: 048
     Dates: start: 20120723, end: 20120827
  4. PEGINTERFERON ALFA-2B [Concomitant]
     Dosage: 1.5, weekly
     Route: 058
     Dates: start: 20120702
  5. PEGINTERFERON ALFA-2B [Concomitant]
     Dosage: 0.75, weekly
     Route: 058
     Dates: start: 20120820, end: 20120827

REACTIONS (1)
  - Rash [Recovered/Resolved]
